FAERS Safety Report 7550925-3 (Version None)
Quarter: 2011Q2

REPORT INFORMATION
  Report Type: 
  Country: None (occurrence: None)
  Receive Date: 20110616
  Receipt Date: 20101027
  Transmission Date: 20111010
  Serious: Yes (Other)
  Sender: FDA-Public Use
  Company Number: US-MYLANLABS-2010S1015608

PATIENT
  Age: 85 Year
  Sex: Female
  Weight: 46.72 kg

DRUGS (3)
  1. CYCLOBENZAPRINE HYDROCHLORIDE [Suspect]
     Indication: MUSCLE SPASMS
     Route: 048
     Dates: start: 20100818, end: 20100822
  2. ANTIHYPERTENSIVES [Concomitant]
  3. CYCLOBENZAPRINE HYDROCHLORIDE [Suspect]
     Route: 048
     Dates: start: 20100818, end: 20100822

REACTIONS (1)
  - URINARY RETENTION [None]
